FAERS Safety Report 11545096 (Version 1)
Quarter: 2015Q3

REPORT INFORMATION
  Report Type: Report from Study
  Country: US (occurrence: US)
  Receive Date: 20150924
  Receipt Date: 20150924
  Transmission Date: 20151125
  Serious: Yes (Hospitalization)
  Sender: FDA-Public Use
  Company Number: US-BIOGENIDEC-2015BI100129

PATIENT
  Age: 67 Year
  Sex: Female

DRUGS (1)
  1. PLEGRIDY [Suspect]
     Active Substance: PEGINTERFERON BETA-1A
     Indication: MULTIPLE SCLEROSIS
     Route: 058
     Dates: start: 20150424

REACTIONS (8)
  - Arrhythmia [Not Recovered/Not Resolved]
  - Oxygen saturation decreased [Recovered/Resolved]
  - General symptom [Recovered/Resolved]
  - Respiratory disorder [Recovered/Resolved]
  - Speech disorder [Unknown]
  - Atrial fibrillation [Unknown]
  - Fluid retention [Recovered/Resolved]
  - Chronic obstructive pulmonary disease [Unknown]

NARRATIVE: CASE EVENT DATE: 201507
